FAERS Safety Report 24986667 (Version 1)
Quarter: 2025Q1

REPORT INFORMATION
  Report Type: Spontaneous
  Country: US (occurrence: None)
  Receive Date: 20250219
  Receipt Date: 20250219
  Transmission Date: 20250408
  Serious: Yes (Other)
  Sender: FDA-CTU
  Company Number: None

PATIENT
  Age: 43 Year
  Sex: Female

DRUGS (1)
  1. HADLIMA [Suspect]
     Active Substance: ADALIMUMAB-BWWD
     Dates: start: 20240812, end: 20250219

REACTIONS (6)
  - Influenza [None]
  - Illness [None]
  - Fatigue [None]
  - Fatigue [None]
  - Drug ineffective [None]
  - Rheumatoid arthritis [None]

NARRATIVE: CASE EVENT DATE: 20250219
